FAERS Safety Report 6590110-5 (Version None)
Quarter: 2010Q1

REPORT INFORMATION
  Report Type: 
  Country: None (occurrence: None)
  Receive Date: 20100212
  Receipt Date: 20100129
  Transmission Date: 20100710
  Serious: Yes (Hospitalization)
  Sender: FDA-Public Use
  Company Number: 237860K09USA

PATIENT
  Age: 52 Year
  Sex: Female
  Weight: 83 kg

DRUGS (3)
  1. REBIF [Suspect]
     Indication: MULTIPLE SCLEROSIS
     Dosage: 22 MCG, 3 IN 1 WEEKS, SUBCUTANEOUS
     Route: 058
     Dates: start: 20090708, end: 20091027
  2. CYMBALATA (DULOXETINE) [Concomitant]
  3. ALBUTEROL [Concomitant]

REACTIONS (4)
  - BACK PAIN [None]
  - GAIT DISTURBANCE [None]
  - INTERVERTEBRAL DISC DEGENERATION [None]
  - MULTIPLE SCLEROSIS RELAPSE [None]
